FAERS Safety Report 13447912 (Version 3)
Quarter: 2017Q2

REPORT INFORMATION
  Report Type: Spontaneous
  Country: GB (occurrence: GB)
  Receive Date: 20170417
  Receipt Date: 20170622
  Transmission Date: 20170830
  Serious: Yes (Disabling, Other)
  Sender: FDA-Public Use
  Company Number: GB-SAOL THERAPEUTICS-2017SAO00692

PATIENT
  Sex: Male

DRUGS (1)
  1. BACLOFEN. [Suspect]
     Active Substance: BACLOFEN
     Dosage: UNK
     Route: 037
     Dates: start: 2007

REACTIONS (10)
  - Pruritus generalised [Unknown]
  - Photophobia [Unknown]
  - Bedridden [Unknown]
  - Headache [Unknown]
  - Anal incontinence [Unknown]
  - Muscle spasticity [Unknown]
  - Implant site pain [Unknown]
  - Device dislocation [Unknown]
  - Visual impairment [Unknown]
  - Fall [Unknown]

NARRATIVE: CASE EVENT DATE: 20151205
